FAERS Safety Report 4821232-4 (Version None)
Quarter: 2005Q4

REPORT INFORMATION
  Report Type: 
  Country: None (occurrence: None)
  Receive Date: 20051103
  Receipt Date: 20041214
  Transmission Date: 20060501
  Serious: Yes (Death, Hospitalization, Other)
  Sender: FDA-Public Use
  Company Number: 2004116310

PATIENT
  Age: 60 Year
  Sex: Male
  Weight: 106.1417 kg

DRUGS (12)
  1. BEXTRA [Suspect]
     Indication: OSTEOARTHRITIS
     Dosage: 20 MG (20 MG, 1 IN 1 D), ORAL
     Route: 048
     Dates: start: 20041006, end: 20041012
  2. ATORVASTATIN CALCIUM [Concomitant]
  3. LISINOPRIL [Concomitant]
  4. AMITRIPTYLINE HCL [Concomitant]
  5. ATENOLOL [Concomitant]
  6. TAMSULOSIN HCL [Concomitant]
  7. ASPIRIN [Concomitant]
  8. LISINOPRIL [Concomitant]
  9. PIOGLITAZONE HCL [Concomitant]
  10. AMITRIPTYLINE HYDROCHLORIDE [Concomitant]
  11. INOSITOL (INOSITOL) [Concomitant]
  12. TAMSULOSIN HYDROCHLORIDE (TAMSULOSIN HYDROCHLORIDE) [Concomitant]

REACTIONS (2)
  - CARDIAC ARREST [None]
  - CONVULSION [None]
